FAERS Safety Report 12991889 (Version 2)
Quarter: 2017Q1

REPORT INFORMATION
  Report Type: Spontaneous
  Country: IT (occurrence: IT)
  Receive Date: 20161201
  Receipt Date: 20170120
  Transmission Date: 20170428
  Serious: Yes (Other)
  Sender: FDA-Public Use
  Company Number: IT-GILEAD-2016-0245170

PATIENT
  Age: 50 Year
  Sex: Male

DRUGS (8)
  1. COPEGUS [Suspect]
     Active Substance: RIBAVIRIN
     Indication: HEPATITIS C
     Dosage: UNK
     Route: 065
  2. LIMPIDEX [Concomitant]
     Active Substance: LANSOPRAZOLE
  3. DELTACORTENE [Concomitant]
     Active Substance: PREDNISONE
  4. TALAVIR [Concomitant]
     Active Substance: VALACYCLOVIR HYDROCHLORIDE
  5. SOVALDI [Suspect]
     Active Substance: SOFOSBUVIR
     Indication: HEPATITIS C
     Dosage: UNK
     Route: 065
  6. INSULIN [Concomitant]
     Active Substance: INSULIN NOS
  7. DIFLUCAN [Concomitant]
     Active Substance: FLUCONAZOLE
  8. BACTRIM DS [Concomitant]
     Active Substance: SULFAMETHOXAZOLE\TRIMETHOPRIM

REACTIONS (1)
  - Jaundice [Unknown]

NARRATIVE: CASE EVENT DATE: 20150421
